FAERS Safety Report 21528672 (Version 2)
Quarter: 2022Q4

REPORT INFORMATION
  Report Type: Spontaneous
  Country: US (occurrence: US)
  Receive Date: 20221031
  Receipt Date: 20221215
  Transmission Date: 20230113
  Serious: No
  Sender: FDA-Public Use
  Company Number: US-PFIZER INC-202201259226

PATIENT
  Age: 25 Year
  Sex: Male
  Weight: 78.47 kg

DRUGS (2)
  1. GENOTROPIN [Suspect]
     Active Substance: SOMATROPIN
     Dosage: 0.4 MG (0.4MG EVERY NIGHT)
  2. GENOTROPIN [Suspect]
     Active Substance: SOMATROPIN
     Dosage: 0.6 MG (0.6MG EVERY NIGHT)
     Dates: start: 20221011

REACTIONS (3)
  - Device use issue [Unknown]
  - Weight increased [Recovering/Resolving]
  - Abdominal pain [Unknown]

NARRATIVE: CASE EVENT DATE: 20210101
